FAERS Safety Report 4541933-5 (Version None)
Quarter: 2004Q4

REPORT INFORMATION
  Report Type: 
  Country: None (occurrence: None)
  Receive Date: 20041227
  Receipt Date: 20041217
  Transmission Date: 20050328
  Serious: Yes (Hospitalization)
  Sender: FDA-Public Use
  Company Number: 211221

PATIENT
  Age: 65 Year
  Sex: Male
  Weight: 53 kg

DRUGS (2)
  1. MABTHERA (RITUXIMAB) [Suspect]
     Indication: WALDENSTROM'S MACROGLOBULINAEMIA
     Dosage: 300 MG, INTRAVENOUS
     Route: 042
     Dates: start: 20040826, end: 20040827
  2. AMPHOTERICIN B [Suspect]
     Dates: start: 20040825, end: 20040830

REACTIONS (4)
  - BILIRUBIN CONJUGATED INCREASED [None]
  - BLOOD BILIRUBIN INCREASED [None]
  - HAEMOLYSIS [None]
  - JAUNDICE [None]
